FAERS Safety Report 16678820 (Version 1)
Quarter: 2019Q3

REPORT INFORMATION
  Report Type: Spontaneous
  Country: CN (occurrence: CN)
  Receive Date: 20190807
  Receipt Date: 20190807
  Transmission Date: 20191004
  Serious: Yes (Hospitalization)
  Sender: FDA-Public Use
  Company Number: CN-EISAI MEDICAL RESEARCH-EC-2019-060227

PATIENT
  Age: 72 Year
  Sex: Female
  Weight: 50 kg

DRUGS (1)
  1. DONEPEZIL. [Suspect]
     Active Substance: DONEPEZIL
     Indication: MEMORY IMPAIRMENT
     Route: 048
     Dates: start: 2017, end: 20190804

REACTIONS (2)
  - Atrioventricular block complete [Recovering/Resolving]
  - Heart rate decreased [Not Recovered/Not Resolved]

NARRATIVE: CASE EVENT DATE: 20190804
